APPROVED DRUG PRODUCT: DOTAREM
Active Ingredient: GADOTERATE MEGLUMINE
Strength: 1.8845GM/5ML (376.9MG/ML)
Dosage Form/Route: SOLUTION;INTRAVENOUS
Application: N204781 | Product #005 | TE Code: AP
Applicant: GUERBET LLC
Approved: Mar 31, 2017 | RLD: Yes | RS: Yes | Type: RX